FAERS Safety Report 7348242-X (Version None)
Quarter: 2011Q1

REPORT INFORMATION
  Report Type: 
  Country: None (occurrence: None)
  Receive Date: 20110222
  Receipt Date: 20100301
  Transmission Date: 20110831
  Serious: Yes (Disabling)
  Sender: FDA-Public Use
  Company Number: 2010022192

PATIENT
  Age: 34 Year
  Sex: Female
  Weight: 86.1834 kg

DRUGS (9)
  1. THYROID TAB [Concomitant]
  2. PREVACID [Concomitant]
  3. PROAIR (FLUTICASONE PROPIONATE) [Concomitant]
  4. AMLODIPINE [Concomitant]
  5. ETODOLAC [Concomitant]
  6. ADVAIR HFA [Concomitant]
  7. NASONEX [Concomitant]
  8. VIVAGLOBIN [Suspect]
     Indication: IMMUNODEFICIENCY COMMON VARIABLE
     Dosage: SEE IMAGE SUBCUTANEOUS
     Route: 058
     Dates: start: 20091019, end: 20091019
  9. VIVAGLOBIN [Suspect]
     Indication: IMMUNODEFICIENCY COMMON VARIABLE
     Dosage: SEE IMAGE SUBCUTANEOUS
     Route: 058
     Dates: start: 20090904, end: 20090904

REACTIONS (2)
  - HEADACHE [None]
  - NAUSEA [None]
